FAERS Safety Report 6482058-1 (Version None)
Quarter: 2009Q4

REPORT INFORMATION
  Report Type: 
  Country: None (occurrence: None)
  Receive Date: 20091208
  Receipt Date: 20090404
  Transmission Date: 20100525
  Serious: No
  Sender: FDA-Public Use
  Company Number: US-AMGEN-KDL341597

PATIENT
  Sex: Female

DRUGS (2)
  1. ENBREL [Suspect]
     Indication: RHEUMATOID ARTHRITIS
     Route: 058
     Dates: start: 20090313
  2. METHOTREXATE [Concomitant]
     Route: 048
     Dates: start: 20090317

REACTIONS (3)
  - ERYTHEMA [None]
  - FEELING HOT [None]
  - LOCAL SWELLING [None]
